FAERS Safety Report 10872863 (Version 1)
Quarter: 2015Q1

REPORT INFORMATION
  Report Type: Spontaneous
  Country: US (occurrence: None)
  Receive Date: 20150223
  Receipt Date: 20150223
  Transmission Date: 20150721
  Serious: Yes (Death, Hospitalization)
  Sender: FDA-Public Use
  Company Number: None

PATIENT
  Age: 65 Year
  Sex: Female
  Weight: 59.5 kg

DRUGS (1)
  1. HUMIRA [Suspect]
     Active Substance: ADALIMUMAB
     Indication: RHEUMATOID ARTHRITIS
     Dosage: RECENTLY CHANGED FROM ENBREL?EVERY 2 WEEKS
     Route: 030

REACTIONS (9)
  - Vomiting [None]
  - Lactic acidosis [None]
  - Diarrhoea [None]
  - Confusional state [None]
  - Cardiac arrest [None]
  - Hypotension [None]
  - Nausea [None]
  - Sepsis [None]
  - Encephalopathy [None]

NARRATIVE: CASE EVENT DATE: 20150219
